FAERS Safety Report 10159248 (Version 2)
Quarter: 2014Q2

REPORT INFORMATION
  Report Type: Report from Study
  Country: CO (occurrence: CO)
  Receive Date: 20140508
  Receipt Date: 20140508
  Transmission Date: 20141212
  Serious: Yes (Other)
  Sender: FDA-Public Use
  Company Number: PHHY2014CO031140

PATIENT
  Age: 36 Year
  Sex: Female

DRUGS (2)
  1. SIGNIFOR [Suspect]
     Dosage: 300 UG (0.3 MG), Q12H
     Route: 058
     Dates: start: 20140211
  2. SIGNIFOR [Suspect]
     Dosage: 300 UG, QD
     Route: 058
     Dates: end: 20140402

REACTIONS (3)
  - Pituitary tumour [Recovering/Resolving]
  - Abdominal pain [Not Recovered/Not Resolved]
  - Diarrhoea [Not Recovered/Not Resolved]
